FAERS Safety Report 4828052-5 (Version None)
Quarter: 2005Q4

REPORT INFORMATION
  Report Type: 
  Country: None (occurrence: None)
  Receive Date: 20051115
  Receipt Date: 20051104
  Transmission Date: 20060501
  Serious: Yes (Other)
  Sender: FDA-Public Use
  Company Number: 2005SE06376

PATIENT
  Age: 25100 Day
  Sex: Female

DRUGS (7)
  1. ZD6474 [Suspect]
     Indication: NON-SMALL CELL LUNG CANCER
     Route: 048
     Dates: start: 20050407
  2. AULIN [Concomitant]
     Indication: PAIN
     Route: 048
     Dates: start: 20050324
  3. NEBILOX [Concomitant]
     Indication: HYPERTENSION
     Route: 048
     Dates: start: 20020101
  4. VASERETIC [Concomitant]
     Indication: HYPERTENSION
     Route: 048
     Dates: start: 20020101
  5. OMEPRAZOLE [Concomitant]
     Indication: PROPHYLAXIS
     Route: 048
  6. TAVOR [Concomitant]
     Indication: ANXIETY
     Route: 048
     Dates: start: 20050414
  7. DISSENTEN [Concomitant]
     Indication: DIARRHOEA
     Route: 048
     Dates: start: 20050421

REACTIONS (1)
  - HYPERTENSIVE CRISIS [None]
